FAERS Safety Report 11680193 (Version 2)
Quarter: 2015Q4

REPORT INFORMATION
  Report Type: Spontaneous
  Country: US (occurrence: US)
  Receive Date: 20151027
  Receipt Date: 20151104
  Transmission Date: 20160304
  Serious: No
  Sender: FDA-Public Use
  Company Number: US-ELI_LILLY_AND_COMPANY-US201002007096

PATIENT
  Age: 66 Year
  Sex: Female

DRUGS (14)
  1. TOPROL XL [Concomitant]
     Active Substance: METOPROLOL SUCCINATE
  2. FORTEO [Suspect]
     Active Substance: TERIPARATIDE
     Indication: OSTEOPOROSIS
     Dosage: 20 UG, DAILY (1/D)
     Route: 065
     Dates: start: 200909
  3. NORVASC [Concomitant]
     Active Substance: AMLODIPINE BESYLATE
  4. DONNATAL [Concomitant]
     Active Substance: ATROPINE SULFATE\HYOSCYAMINE SULFATE\PHENOBARBITAL\SCOPOLAMINE HYDROBROMIDE
  5. FUROSEMIDE. [Concomitant]
     Active Substance: FUROSEMIDE
  6. RELAFEN [Concomitant]
     Active Substance: NABUMETONE
  7. FORTEO [Suspect]
     Active Substance: TERIPARATIDE
     Dosage: 20 UG, DAILY (1/D)
     Route: 065
  8. SYNTHROID [Concomitant]
     Active Substance: LEVOTHYROXINE SODIUM
     Dosage: UNK, UNKNOWN
     Route: 065
  9. CALCIUM +VIT D [Concomitant]
     Active Substance: CALCIUM\VITAMIN D
  10. FORTEO [Suspect]
     Active Substance: TERIPARATIDE
     Dosage: 20 UG, DAILY (1/D)
     Route: 065
  11. DIOVAN [Concomitant]
     Active Substance: VALSARTAN
  12. NEXIUM [Concomitant]
     Active Substance: ESOMEPRAZOLE MAGNESIUM
  13. CARAFATE [Concomitant]
     Active Substance: SUCRALFATE
  14. MYSOLINE [Concomitant]
     Active Substance: PRIMIDONE

REACTIONS (10)
  - Foot operation [Unknown]
  - Limb discomfort [Unknown]
  - Arthritis [Unknown]
  - Blood sodium decreased [Unknown]
  - Arthralgia [Unknown]
  - Injection site pain [Unknown]
  - Pain in extremity [Unknown]
  - Blood calcium increased [Recovered/Resolved]
  - Foot operation [Unknown]
  - Dizziness [Recovered/Resolved]

NARRATIVE: CASE EVENT DATE: 20091030
